FAERS Safety Report 6957023-8 (Version None)
Quarter: 2010Q3

REPORT INFORMATION
  Report Type: 
  Country: None (occurrence: None)
  Receive Date: 20100827
  Receipt Date: 20100827
  Transmission Date: 20110219
  Serious: No
  Sender: FDA-Public Use
  Company Number: None

PATIENT
  Age: 51 Year
  Sex: Male

DRUGS (4)
  1. AMPYRA [Suspect]
     Indication: MULTIPLE SCLEROSIS
     Dosage: 10 MG PO BID
     Route: 048
     Dates: start: 20100730, end: 20100818
  2. SIMVASTATIN [Concomitant]
  3. FLUOCINONIDE GEL [Concomitant]
  4. OMEPRAZOLE [Concomitant]

REACTIONS (4)
  - BALANCE DISORDER [None]
  - DIZZINESS [None]
  - FALL [None]
  - HYPOAESTHESIA [None]
